FAERS Safety Report 7274731-2 (Version None)
Quarter: 2011Q1

REPORT INFORMATION
  Report Type: 
  Country: None (occurrence: None)
  Receive Date: 20110204
  Receipt Date: 20110124
  Transmission Date: 20110831
  Serious: Yes (Hospitalization, Other)
  Sender: FDA-Public Use
  Company Number: US-ELI_LILLY_AND_COMPANY-US201008001108

PATIENT
  Sex: Female

DRUGS (8)
  1. PREDNISONE [Concomitant]
     Indication: ARTHRITIS
  2. ASPIRIN [Concomitant]
  3. LISINOPRIL AND HYDROCHLOROTHIAZIDE [Concomitant]
     Indication: BLOOD PRESSURE INCREASED
  4. ZOCOR [Concomitant]
  5. VITAMIN D [Concomitant]
  6. FORTEO [Suspect]
     Dosage: 20 UG, DAILY (1/D)
     Dates: start: 20101101
  7. CALCIUM [Concomitant]
  8. FORTEO [Suspect]
     Indication: OSTEOPOROSIS
     Dosage: 20 UG, DAILY (1/D)
     Dates: start: 20100601, end: 20101001

REACTIONS (18)
  - COMPRESSION FRACTURE [None]
  - DYSGEUSIA [None]
  - HEART RATE INCREASED [None]
  - DECREASED APPETITE [None]
  - HAEMATOCHEZIA [None]
  - WEIGHT DECREASED [None]
  - VOMITING [None]
  - HIATUS HERNIA [None]
  - ULCER HAEMORRHAGE [None]
  - FLUID INTAKE REDUCED [None]
  - DEHYDRATION [None]
  - HYPOTENSION [None]
  - MALAISE [None]
  - DIARRHOEA [None]
  - ABDOMINAL DISCOMFORT [None]
  - PAIN [None]
  - ULCER [None]
  - INJECTION SITE PAIN [None]
